FAERS Safety Report 6313624-1 (Version None)
Quarter: 2009Q3

REPORT INFORMATION
  Report Type: 
  Country: None (occurrence: None)
  Receive Date: 20090814
  Receipt Date: 20090814
  Transmission Date: 20100115
  Serious: Yes (Hospitalization)
  Sender: FDA-Public Use
  Company Number: None

PATIENT
  Sex: Female
  Weight: 49 kg

DRUGS (11)
  1. FLUDARABINE PHOSPHATE [Suspect]
  2. MELPHALAN [Suspect]
  3. ZOVIRAX [Concomitant]
  4. DAPSONE (AVLOSULFON) [Concomitant]
  5. NEXIUM [Concomitant]
  6. DIFLUCAN [Concomitant]
  7. LEVODOPA/CARB (SINEMET) [Concomitant]
  8. ZOLOFT [Concomitant]
  9. PROGRAF [Concomitant]
  10. DILAUDID [Concomitant]
  11. ATIVAN [Concomitant]

REACTIONS (4)
  - CONTUSION [None]
  - EYE INJURY [None]
  - FALL [None]
  - FATIGUE [None]
